FAERS Safety Report 12202313 (Version 2)
Quarter: 2016Q2

REPORT INFORMATION
  Report Type: Spontaneous
  Country: US (occurrence: US)
  Receive Date: 20160322
  Receipt Date: 20160531
  Transmission Date: 20160815
  Serious: Yes (Other)
  Sender: FDA-Public Use
  Company Number: US-SA-2016SA054210

PATIENT
  Age: 85 Year
  Sex: Female

DRUGS (4)
  1. LANTUS SOLOSTAR [Suspect]
     Active Substance: INSULIN GLARGINE
     Indication: TYPE 2 DIABETES MELLITUS
     Dosage: DOSE:40 UNIT(S)
     Route: 065
     Dates: start: 2014
  2. LANTUS SOLOSTAR [Suspect]
     Active Substance: INSULIN GLARGINE
     Indication: TYPE 2 DIABETES MELLITUS
     Dosage: DOSE:40 UNIT(S)
     Route: 065
     Dates: start: 2014
  3. NOVOLOG [Concomitant]
     Active Substance: INSULIN ASPART
     Dosage: DOSE:40 UNIT(S)
  4. SOLOSTAR [Concomitant]
     Active Substance: DEVICE
     Dates: start: 2014

REACTIONS (2)
  - Cardiac disorder [Unknown]
  - Intentional product misuse [Unknown]
